FAERS Safety Report 8341875 (Version 2)
Quarter: 2012Q4

REPORT INFORMATION
  Report Type: 
  Country: US (occurrence: US)
  Receive Date: 20120118
  Receipt Date: 20120911
  Transmission Date: 20130627
  Serious: Yes (Other)
  Sender: FDA-Public Use
  Company Number: US-ROCHE-1031094

PATIENT
  Sex: Male
  Weight: 61.29 kg

DRUGS (2)
  1. ACCUTANE [Suspect]
     Indication: ACNE
     Route: 065
     Dates: start: 19980407, end: 19980424
  2. ACCUTANE [Suspect]
     Route: 065
     Dates: start: 19980531, end: 19980619

REACTIONS (7)
  - Crohn^s disease [Unknown]
  - Colitis ulcerative [Unknown]
  - Inflammatory bowel disease [Unknown]
  - Intestinal haemorrhage [Unknown]
  - Ankylosing spondylitis [Unknown]
  - Depression [Unknown]
  - Injury [Unknown]
